FAERS Safety Report 9000630 (Version 3)
Quarter: 2013Q2

REPORT INFORMATION
  Report Type: Spontaneous
  Country: US (occurrence: US)
  Receive Date: 20130107
  Receipt Date: 20130509
  Transmission Date: 20140414
  Serious: No
  Sender: FDA-Public Use
  Company Number: US-009507513-1301USA001938

PATIENT
  Age: 40 Year
  Sex: Male

DRUGS (7)
  1. VICTRELIS [Suspect]
     Indication: HEPATITIS C
     Dosage: 600 MG IN THE MORNING AND 400 MG IN THE EVENING
     Route: 048
  2. RIBAPAK [Suspect]
     Indication: HEPATITIS C
  3. PEGASYS [Suspect]
     Indication: HEPATITIS C
  4. PROCRIT [Concomitant]
  5. HYDROXYZINE [Concomitant]
  6. ASCORBIC ACID [Concomitant]
  7. IRON (UNSPECIFIED) [Concomitant]

REACTIONS (5)
  - Fatigue [Not Recovered/Not Resolved]
  - Asthenia [Not Recovered/Not Resolved]
  - Dysgeusia [Not Recovered/Not Resolved]
  - Pyrexia [Unknown]
  - Inappropriate schedule of drug administration [Unknown]
